FAERS Safety Report 6238877-X (Version None)
Quarter: 2009Q2

REPORT INFORMATION
  Report Type: 
  Country: None (occurrence: None)
  Receive Date: 20090617
  Receipt Date: 20080116
  Transmission Date: 20091009
  Serious: No
  Sender: FDA-Public Use
  Company Number: 271127

PATIENT
  Age: 65 Year
  Sex: Female

DRUGS (11)
  1. LEVEMIR [Suspect]
     Indication: INSULIN-REQUIRING TYPE 2 DIABETES MELLITUS
     Dosage: BID, SUBCUTANEOUS
     Route: 058
     Dates: start: 20070801
  2. NOVOLOG FLEXPEN (INSULIN ASPART) SOLUTION FOR INJECTION [Concomitant]
  3. ATENOLOL [Concomitant]
  4. ZETIA [Concomitant]
  5. MOBIC [Concomitant]
  6. PROTONIX [Concomitant]
  7. LYRICA [Concomitant]
  8. PRAVASTATIN [Concomitant]
  9. TRICHOL (FENOFIBRATE) [Concomitant]
  10. PREMARIN [Concomitant]
  11. LASIX [Concomitant]

REACTIONS (1)
  - MEDICAL DEVICE COMPLICATION [None]
